FAERS Safety Report 7044941-8 (Version None)
Quarter: 2010Q4

REPORT INFORMATION
  Report Type: 
  Country: None (occurrence: None)
  Receive Date: 20101014
  Receipt Date: 20101004
  Transmission Date: 20110411
  Serious: Yes (Hospitalization)
  Sender: FDA-Public Use
  Company Number: PHHY2010MX66746

PATIENT
  Age: 57 Year
  Sex: Female

DRUGS (1)
  1. TEGRETOL [Suspect]
     Indication: EPILEPSY
     Dosage: 2 DF, QD
     Route: 048
     Dates: start: 19990901

REACTIONS (2)
  - BRAIN NEOPLASM [None]
  - BRAIN TUMOUR OPERATION [None]
